FAERS Safety Report 5366269-4 (Version None)
Quarter: 2007Q2

REPORT INFORMATION
  Report Type: 
  Country: None (occurrence: None)
  Receive Date: 20070619
  Receipt Date: 20070619
  Transmission Date: 20071010
  Serious: No
  Sender: FDA-Public Use
  Company Number: None

PATIENT
  Age: 43 Year
  Sex: Male
  Weight: 89.4 kg

DRUGS (1)
  1. LISINOPRIL [Suspect]
     Indication: HYPERTENSION
     Dosage: PO
     Route: 048
     Dates: end: 20070119

REACTIONS (6)
  - ANGIOEDEMA [None]
  - DYSPNOEA EXERTIONAL [None]
  - MUSCLE TIGHTNESS [None]
  - OEDEMA [None]
  - SINUS DISORDER [None]
  - TONSILLAR DISORDER [None]
